FAERS Safety Report 9440358 (Version 1)
Quarter: 2013Q3

REPORT INFORMATION
  Report Type: Report from Study
  Country: US (occurrence: US)
  Receive Date: 20130805
  Receipt Date: 20130805
  Transmission Date: 20140515
  Serious: No
  Sender: FDA-Public Use
  Company Number: US-BAXTER-2013BAX029431

PATIENT
  Age: 72 Year
  Sex: Male
  Weight: 77 kg

DRUGS (6)
  1. GAMMAGARD LIQUID [Suspect]
     Indication: PRIMARY IMMUNODEFICIENCY SYNDROME
     Route: 058
     Dates: start: 201211, end: 20130617
  2. GAMMAGARD LIQUID [Suspect]
     Route: 058
     Dates: start: 201307
  3. PREDNISONE [Suspect]
     Indication: RASH
     Route: 048
  4. PREDNISONE [Suspect]
     Indication: PYREXIA
  5. ATENOLOL [Concomitant]
     Indication: HYPERTENSION
     Route: 048
     Dates: start: 2003
  6. LOSARTAN [Concomitant]
     Indication: HYPERTENSION
     Route: 048

REACTIONS (2)
  - Pyrexia [Recovered/Resolved]
  - Rash papular [Recovered/Resolved]
